FAERS Safety Report 19502841 (Version 1)
Quarter: 2021Q3

REPORT INFORMATION
  Report Type: Spontaneous
  Country: US (occurrence: US)
  Receive Date: 20210707
  Receipt Date: 20210707
  Transmission Date: 20211014
  Serious: Yes (Other)
  Sender: FDA-Public Use
  Company Number: ALC2021US004082

PATIENT
  Age: 70 Year
  Sex: Female

DRUGS (7)
  1. BSS [Suspect]
     Active Substance: CALCIUM CHLORIDE\MAGNESIUM CHLORIDE\POTASSIUM CHLORIDE\SODIUM ACETATE\SODIUM CHLORIDE\SODIUM CITRATE
     Dosage: UNK
     Route: 047
  2. POVIDONE?IODINE. [Suspect]
     Active Substance: POVIDONE-IODINE
     Indication: SURGERY
     Route: 065
  3. TETRACAINE HCL [Suspect]
     Active Substance: TETRACAINE HYDROCHLORIDE
     Dosage: UNK
     Route: 065
  4. TETRACAINE HCL [Suspect]
     Active Substance: TETRACAINE HYDROCHLORIDE
     Indication: SURGERY
     Route: 065
  5. DUOVISC [Suspect]
     Active Substance: CHONDROITIN SULFATE SODIUM NOS\HYALURONATE SODIUM
     Indication: PREOPERATIVE CARE
     Route: 065
  6. LIDOCAINE. [Suspect]
     Active Substance: LIDOCAINE
     Indication: PREOPERATIVE CARE
  7. BSS [Suspect]
     Active Substance: CALCIUM CHLORIDE\MAGNESIUM CHLORIDE\POTASSIUM CHLORIDE\SODIUM ACETATE\SODIUM CHLORIDE\SODIUM CITRATE
     Indication: CATARACT OPERATION
     Dosage: UNK
     Route: 047

REACTIONS (6)
  - Aqueous fibrin [Recovered/Resolved]
  - Anterior chamber inflammation [Recovered/Resolved]
  - Corneal oedema [Recovered/Resolved]
  - Hypopyon [Recovered/Resolved]
  - Toxic anterior segment syndrome [Recovered/Resolved]
  - Vitritis [Recovered/Resolved]

NARRATIVE: CASE EVENT DATE: 20210519
